FAERS Safety Report 21772371 (Version 7)
Quarter: 2023Q2

REPORT INFORMATION
  Report Type: Report from Study
  Country: US (occurrence: US)
  Receive Date: 20221223
  Receipt Date: 20230411
  Transmission Date: 20230722
  Serious: No
  Sender: FDA-Public Use
  Company Number: US-002147023-NVSC2022US296115

PATIENT
  Age: 57 Year
  Sex: Male

DRUGS (2)
  1. COSENTYX [Suspect]
     Active Substance: SECUKINUMAB
     Indication: Psoriasis
     Dosage: 300 MG, QW
     Route: 058
  2. COSENTYX [Suspect]
     Active Substance: SECUKINUMAB
     Indication: Psoriasis
     Dosage: 300 MILLIGRAM PER MILLILITRE, QW (2 TIMES 150 MG/ML)
     Route: 058
     Dates: start: 20221128

REACTIONS (16)
  - Limb injury [Unknown]
  - Gait disturbance [Unknown]
  - Skin ulcer [Unknown]
  - Skin irritation [Unknown]
  - Joint swelling [Not Recovered/Not Resolved]
  - Erythema [Not Recovered/Not Resolved]
  - Joint warmth [Not Recovered/Not Resolved]
  - Pain [Unknown]
  - Rash [Unknown]
  - Skin mass [Unknown]
  - Chills [Unknown]
  - Pyrexia [Unknown]
  - Skin burning sensation [Unknown]
  - Contusion [Unknown]
  - Diarrhoea [Unknown]
  - Drug ineffective [Not Recovered/Not Resolved]

NARRATIVE: CASE EVENT DATE: 20221101
